FAERS Safety Report 9893825 (Version 4)
Quarter: 2015Q1

REPORT INFORMATION
  Report Type: Report from Study
  Country: US (occurrence: US)
  Receive Date: 20140213
  Receipt Date: 20150121
  Transmission Date: 20150721
  Serious: No
  Sender: FDA-Public Use
  Company Number: US-BAYER-2014-022297

PATIENT
  Age: 75 Year
  Sex: Male

DRUGS (2)
  1. STIVARGA [Suspect]
     Active Substance: REGORAFENIB
     Indication: COLON CANCER
     Dosage: 120 MG DAILY
     Route: 048
  2. STIVARGA [Suspect]
     Active Substance: REGORAFENIB
     Indication: COLON CANCER
     Dosage: 160 MG, QD
     Route: 048
     Dates: start: 20131129

REACTIONS (7)
  - Cognitive disorder [None]
  - Drug ineffective [None]
  - Skin exfoliation [None]
  - Weight decreased [None]
  - Skin lesion [None]
  - Dysphonia [None]
  - Furuncle [None]

NARRATIVE: CASE EVENT DATE: 20140101
